FAERS Safety Report 16338136 (Version 5)
Quarter: 2021Q1

REPORT INFORMATION
  Report Type: Spontaneous
  Country: FR (occurrence: FR)
  Receive Date: 20190521
  Receipt Date: 20210211
  Transmission Date: 20210419
  Serious: Yes (Hospitalization, Other)
  Sender: FDA-Public Use
  Company Number: FR-JNJFOC-20190513028

PATIENT
  Age: 62 Year
  Sex: Female
  Weight: 105 kg

DRUGS (10)
  1. HUMIRA [Suspect]
     Active Substance: ADALIMUMAB
     Indication: PSORIASIS
     Route: 065
  2. IXEKIZUMAB [Suspect]
     Active Substance: IXEKIZUMAB
     Indication: PSORIASIS
     Route: 065
     Dates: start: 201812
  3. DAIVOBET [Concomitant]
     Active Substance: BETAMETHASONE DIPROPIONATE\CALCIPOTRIENE
  4. TREMFYA [Suspect]
     Active Substance: GUSELKUMAB
     Indication: PSORIASIS
     Route: 058
     Dates: start: 20190423, end: 20190426
  5. XAMIOL                             /06356901/ [Concomitant]
     Active Substance: BETAMETHASONE DIPROPIONATE\CALCIPOTRIENE
  6. TREMFYA [Suspect]
     Active Substance: GUSELKUMAB
  7. TREMFYA [Suspect]
     Active Substance: GUSELKUMAB
  8. XAMIOL [BETAMETHASONE DIPROPIONATE;CALCIPOTRIOL MONOHYDRATE] [Concomitant]
     Route: 065
  9. METFORMIN HYDROCHLORIDE. [Concomitant]
     Active Substance: METFORMIN HYDROCHLORIDE
  10. RIVAROXABAN [Concomitant]
     Active Substance: RIVAROXABAN

REACTIONS (2)
  - Myocardial infarction [Recovering/Resolving]
  - Escherichia pyelonephritis [Recovering/Resolving]

NARRATIVE: CASE EVENT DATE: 20190426
